FAERS Safety Report 6580608-8 (Version None)
Quarter: 2010Q1

REPORT INFORMATION
  Report Type: 
  Country: None (occurrence: None)
  Receive Date: 20100212
  Receipt Date: 20100116
  Transmission Date: 20100710
  Serious: Yes (Other)
  Sender: FDA-Public Use
  Company Number: US-JNJFOC-20100110566

PATIENT
  Age: 63 Year
  Sex: Female

DRUGS (3)
  1. REGULAR STRENGTH TYLENOL TABLETS [Suspect]
     Indication: MYALGIA
     Dosage: 1300-1950 MG  PER DAY
     Route: 048
  2. REGULAR STRENGTH TYLENOL TABLETS [Suspect]
     Indication: ARTHRITIS
     Dosage: 1300-1950 MG  PER DAY
     Route: 048
  3. REGULAR STRENGTH TYLENOL TABLETS [Suspect]
     Indication: HEADACHE
     Dosage: 1300-1950 MG  PER DAY
     Route: 048

REACTIONS (3)
  - DIARRHOEA [None]
  - HAEMATOCHEZIA [None]
  - PRODUCT QUALITY ISSUE [None]
